FAERS Safety Report 5552445-4 (Version None)
Quarter: 2007Q4

REPORT INFORMATION
  Report Type: 
  Country: None (occurrence: None)
  Receive Date: 20071205
  Receipt Date: 20071120
  Transmission Date: 20080405
  Serious: Yes (Other)
  Sender: FDA-Public Use
  Company Number: CHPA2007US12795

PATIENT
  Age: 56 Year
  Sex: Female

DRUGS (2)
  1. THERAFLU UNKNOWN (NCH)(UNKNOWN) DISPERSIBLE TABLET [Suspect]
     Dosage: 1 DF,ONCE/SINGLE, ORAL
     Route: 048
     Dates: start: 20071119, end: 20071119
  2. DRUG THERAPY NOS (DRUG THERAPY NOS) [Concomitant]

REACTIONS (2)
  - DIARRHOEA [None]
  - LOSS OF CONSCIOUSNESS [None]
